FAERS Safety Report 4890923-1 (Version None)
Quarter: 2006Q1

REPORT INFORMATION
  Report Type: 
  Country: None (occurrence: None)
  Receive Date: 20060125
  Receipt Date: 20060113
  Transmission Date: 20060701
  Serious: Yes (Hospitalization, Other)
  Sender: FDA-Public Use
  Company Number: FR-JNJFOC-20051205045

PATIENT
  Sex: Female
  Weight: 100 kg

DRUGS (6)
  1. RISPERDAL [Suspect]
     Indication: DELUSION
     Route: 048
     Dates: start: 20050526, end: 20050613
  2. TERCIAN [Suspect]
     Indication: DELUSION
     Route: 065
     Dates: start: 20050526
  3. LEPTICUR [Suspect]
     Indication: DRUG USE FOR UNKNOWN INDICATION
     Route: 065
     Dates: start: 20050526
  4. IMOVANE [Concomitant]
     Indication: DRUG USE FOR UNKNOWN INDICATION
     Dates: start: 20050301
  5. SULFARLEM [Concomitant]
     Indication: DRUG USE FOR UNKNOWN INDICATION
     Dosage: DOSE = TABLET
  6. EFFERALGAN [Concomitant]
     Indication: DRUG USE FOR UNKNOWN INDICATION

REACTIONS (8)
  - BRONCHIAL DISORDER [None]
  - COMA [None]
  - HYPERTHERMIA [None]
  - HYPONATRAEMIA [None]
  - NEUROLEPTIC MALIGNANT SYNDROME [None]
  - RHABDOMYOLYSIS [None]
  - VOMITING [None]
  - WATER INTOXICATION [None]
